FAERS Safety Report 4941876-9 (Version None)
Quarter: 2006Q1

REPORT INFORMATION
  Report Type: 
  Country: None (occurrence: None)
  Receive Date: 20060306
  Receipt Date: 20060227
  Transmission Date: 20060701
  Serious: Yes (Hospitalization, Other)
  Sender: FDA-Public Use
  Company Number: HQWYE696512MAY05

PATIENT
  Age: 50 Year
  Sex: Male
  Weight: 127 kg

DRUGS (13)
  1. CYCLOSPORINE [Suspect]
     Indication: PROPHYLAXIS AGAINST TRANSPLANT REJECTION
     Dosage: 50 MG 2X PER 1 DAY, ORAL
     Route: 048
     Dates: start: 20020405
  2. ASPIRIN [Concomitant]
  3. PREDNISONE TAB [Concomitant]
  4. LANTUS [Concomitant]
  5. INSULIN LISPRO (INSULIN LISPRO) [Concomitant]
  6. TOPROL-XL [Concomitant]
  7. NORVASC [Concomitant]
  8. COZAAR [Concomitant]
  9. INDOMETHACIN [Concomitant]
  10. PRILOSEC [Concomitant]
  11. ARICEPT [Concomitant]
  12. FOLIC ACID [Concomitant]
  13. AMBIEN [Concomitant]

REACTIONS (6)
  - ABDOMINAL WALL ABSCESS [None]
  - HEPATIC CANCER METASTATIC [None]
  - LARYNGEAL MASS [None]
  - LIVER ABSCESS [None]
  - PANCREATITIS CHRONIC [None]
  - PORTAL VEIN THROMBOSIS [None]
